FAERS Safety Report 14794533 (Version 3)
Quarter: 2018Q2

REPORT INFORMATION
  Report Type: Spontaneous
  Country: JP (occurrence: JP)
  Receive Date: 20180423
  Receipt Date: 20180611
  Transmission Date: 20180711
  Serious: Yes (Hospitalization)
  Sender: FDA-Public Use
  Company Number: JP-JNJFOC-20180424808

PATIENT
  Age: 44 Year
  Sex: Female
  Weight: 47 kg

DRUGS (17)
  1. REMICADE [Suspect]
     Active Substance: INFLIXIMAB
     Indication: CROHN^S DISEASE
     Dosage: 235 MG ,  23-JAN-2018,
     Route: 042
     Dates: start: 20150512, end: 20180403
  2. DAIKENCHUTO [Concomitant]
     Active Substance: HERBALS
     Route: 065
  3. HOCHUEKKITO [Concomitant]
     Active Substance: HERBALS
     Route: 065
  4. NAUZELIN [Concomitant]
     Active Substance: DOMPERIDONE
     Route: 048
  5. LINZESS [Concomitant]
     Active Substance: LINACLOTIDE
     Route: 048
  6. LOXONIN [Concomitant]
     Active Substance: LOXOPROFEN SODIUM
     Route: 048
  7. PENTASA [Concomitant]
     Active Substance: MESALAMINE
     Indication: CROHN^S DISEASE
     Route: 048
     Dates: start: 20160802
  8. PENTASA [Concomitant]
     Active Substance: MESALAMINE
     Indication: CROHN^S DISEASE
     Route: 048
     Dates: start: 20150512, end: 20160801
  9. FURSULTIAMINE [Concomitant]
     Active Substance: FURSULTIAMINE
     Route: 048
  10. NEXIUM [Concomitant]
     Active Substance: ESOMEPRAZOLE MAGNESIUM
     Route: 048
  11. POLAPREZINC [Concomitant]
     Active Substance: POLAPREZINC
     Route: 048
  12. MUCOSTA [Concomitant]
     Active Substance: REBAMIPIDE
     Route: 048
  13. BIOFERMIN [Concomitant]
     Active Substance: BACILLUS SUBTILIS\LACTOBACILLUS ACIDOPHILUS\STREPTOCOCCUS FAECAIS
     Indication: CROHN^S DISEASE
     Route: 048
     Dates: start: 20150512
  14. TAKECAB [Concomitant]
     Active Substance: VONOPRAZAN FUMURATE
     Route: 048
  15. BUSCOPAN [Concomitant]
     Active Substance: BUTYLSCOPOLAMINE BROMIDE
     Route: 048
  16. FERROMIA [Concomitant]
     Active Substance: SODIUM FERROUS CITRATE
     Route: 048
  17. BELSOMRA [Concomitant]
     Active Substance: SUVOREXANT
     Route: 048

REACTIONS (1)
  - Anal squamous cell carcinoma [Recovered/Resolved]

NARRATIVE: CASE EVENT DATE: 20180203
